FAERS Safety Report 12473253 (Version 2)
Quarter: 2016Q2

REPORT INFORMATION
  Report Type: Spontaneous
  Country: US (occurrence: US)
  Receive Date: 20160616
  Receipt Date: 20160617
  Transmission Date: 20160815
  Serious: Yes (Hospitalization, Other)
  Sender: FDA-Public Use
  Company Number: US-PFIZER INC-2016299948

PATIENT
  Age: 61 Year
  Sex: Female

DRUGS (9)
  1. DULOXETINE. [Concomitant]
     Active Substance: DULOXETINE
     Indication: DIABETIC NEUROPATHY
     Dosage: 60 MG, 1X/DAY (60MG, ONCE AT NIGHT)
     Route: 048
  2. GENOTROPIN [Suspect]
     Active Substance: SOMATROPIN
     Indication: PITUITARY-DEPENDENT CUSHING^S SYNDROME
     Dosage: 0.3 MG, DAILY (0.3MG INJECTION EVERY DAY)
  3. OXAZEPAM. [Concomitant]
     Active Substance: OXAZEPAM
     Indication: SLEEP DISORDER
     Dosage: 10 MG, 1X/DAY (10MG ONCE AT NIGHT)
     Route: 048
  4. LYRICA [Concomitant]
     Active Substance: PREGABALIN
     Indication: DIABETIC NEUROPATHY
     Dosage: 75 MG, 2X/DAY (75MG CAPSULE, ONE IN THE MORNING AND ONE AT NIGHT)
     Route: 048
  5. LIOTHYRONINE [Concomitant]
     Active Substance: LIOTHYRONINE
     Indication: THYROID DISORDER
     Dosage: 5 UG
     Route: 048
  6. L-METHYLFOLATE [Concomitant]
     Dosage: 1 DF, 2X/DAY (ONE IN THE MORNING AND ONE AT NOON)
     Route: 048
  7. LEVOTHYROXINE. [Concomitant]
     Active Substance: LEVOTHYROXINE
     Indication: HYPOTHYROIDISM
     Dosage: 0.125 MG, UNK
     Route: 048
  8. FLUDROCORTISONE [Concomitant]
     Active Substance: FLUDROCORTISONE
     Indication: ADRENAL DISORDER
     Dosage: 0.1 MG, 1X/DAY
     Route: 048
  9. HYDROCORTISONE. [Concomitant]
     Active Substance: HYDROCORTISONE
     Indication: ADRENAL DISORDER
     Dosage: 2X/DAY(20MG ONE IN THE MORNING,5MG AT 1:30 IN THE AFTERNOON)
     Route: 048

REACTIONS (5)
  - Memory impairment [Recovering/Resolving]
  - Product use issue [Unknown]
  - Eructation [Not Recovered/Not Resolved]
  - Oropharyngeal spasm [Recovered/Resolved]
  - Vomiting [Unknown]

NARRATIVE: CASE EVENT DATE: 201509
